FAERS Safety Report 11783678 (Version 2)
Quarter: 2016Q1

REPORT INFORMATION
  Report Type: Report from Study
  Country: PH (occurrence: PH)
  Receive Date: 20151127
  Receipt Date: 20160208
  Transmission Date: 20160525
  Serious: Yes (Life-Threatening, Hospitalization)
  Sender: FDA-Public Use
  Company Number: PH-ASTRAZENECA-2015SE90902

PATIENT
  Age: 62 Year
  Sex: Female
  Weight: 39.8 kg

DRUGS (10)
  1. ATORVASTATIN [Concomitant]
     Active Substance: ATORVASTATIN
     Route: 048
     Dates: start: 20150608
  2. MORPHINE SULPHATE AST [Concomitant]
     Route: 048
     Dates: start: 20150827
  3. MULTIVITAMIN (APPEBON) [Concomitant]
     Route: 048
     Dates: start: 20150608
  4. LOSARTAN. [Concomitant]
     Active Substance: LOSARTAN
     Route: 048
     Dates: start: 20150608
  5. IRESSA [Suspect]
     Active Substance: GEFITINIB
     Indication: NON-SMALL CELL LUNG CANCER
     Route: 048
     Dates: start: 20150907, end: 20150927
  6. IRESSA [Suspect]
     Active Substance: GEFITINIB
     Indication: NON-SMALL CELL LUNG CANCER
     Route: 048
     Dates: start: 20150928, end: 20151018
  7. AMLODIPINE [Concomitant]
     Active Substance: AMLODIPINE BESYLATE
     Route: 048
     Dates: start: 20150608
  8. TRADJENTA [Concomitant]
     Active Substance: LINAGLIPTIN
     Dosage: 2.5MG/500 MD ONCE
     Route: 048
  9. PREGABALIN. [Concomitant]
     Active Substance: PREGABALIN
     Route: 048
     Dates: start: 20150818
  10. NORGESIC [Concomitant]
     Active Substance: ASPIRIN\CAFFEINE\ORPHENADRINE CITRATE
     Dosage: 50/650 MG PRN
     Route: 048
     Dates: start: 20150906

REACTIONS (1)
  - Sepsis [Recovered/Resolved]

NARRATIVE: CASE EVENT DATE: 20150915
